FAERS Safety Report 14456329 (Version 2)
Quarter: 2018Q1

REPORT INFORMATION
  Report Type: Spontaneous
  Country: None (occurrence: IN)
  Receive Date: 20180130
  Receipt Date: 20180130
  Transmission Date: 20180509
  Serious: No
  Sender: FDA-Public Use
  Company Number: IN-LUPIN PHARMACEUTICALS INC.-2017-07166

PATIENT
  Age: 58 Year
  Sex: Male

DRUGS (3)
  1. VALENT FILM C.TABS 80 MG [Suspect]
     Active Substance: VALSARTAN
     Dosage: 1 DF, QD
     Route: 048
     Dates: start: 20171115, end: 20171121
  2. VALENT FILM C.TABS 80 MG [Suspect]
     Active Substance: VALSARTAN
     Indication: HYPERTENSION
     Dosage: 1 DF, QD
     Route: 048
     Dates: start: 2007
  3. VALENT FILM C.TABS 80 MG [Suspect]
     Active Substance: VALSARTAN
     Dosage: 1 DF, QD
     Route: 048
     Dates: start: 20171122

REACTIONS (1)
  - Feeling abnormal [Recovered/Resolved]

NARRATIVE: CASE EVENT DATE: 20171121
